FAERS Safety Report 7737181-8 (Version None)
Quarter: 2011Q3

REPORT INFORMATION
  Report Type: 
  Country: None (occurrence: None)
  Receive Date: 20110908
  Receipt Date: 20110905
  Transmission Date: 20111222
  Serious: Yes (Other)
  Sender: FDA-Public Use
  Company Number: GB-ROCHE-801014

PATIENT
  Age: 67 Year
  Sex: Female

DRUGS (3)
  1. BENDROFLUAZIDE [Concomitant]
     Indication: HYPERTENSION
  2. PEGINTERFERON ALFA-2A [Suspect]
     Indication: HEPATITIS C
     Route: 065
  3. RIBAVIRIN [Suspect]
     Indication: HEPATITIS C
     Route: 065

REACTIONS (7)
  - ERYTHEMA NODOSUM [None]
  - EYELID OEDEMA [None]
  - HYPERTHYROIDISM [None]
  - NIGHT SWEATS [None]
  - SARCOIDOSIS [None]
  - ARTHRALGIA [None]
  - LACRIMAL DISORDER [None]
